FAERS Safety Report 6653402-7 (Version None)
Quarter: 2010Q1

REPORT INFORMATION
  Report Type: 
  Country: None (occurrence: None)
  Receive Date: 20100326
  Receipt Date: 20100317
  Transmission Date: 20100710
  Serious: No
  Sender: FDA-Public Use
  Company Number: BR-ROCHE-693072

PATIENT
  Sex: Female

DRUGS (1)
  1. TAMIFLU [Suspect]
     Dosage: START DATE: 2010
     Route: 065

REACTIONS (2)
  - NO ADVERSE EVENT [None]
  - PREGNANCY [None]
